FAERS Safety Report 5065119-3 (Version None)
Quarter: 2006Q3

REPORT INFORMATION
  Report Type: 
  Country: None (occurrence: None)
  Receive Date: 20060727
  Receipt Date: 20060727
  Transmission Date: 20061208
  Serious: Yes (Hospitalization)
  Sender: FDA-Public Use
  Company Number: None

PATIENT
  Age: 66 Year
  Sex: Female
  Weight: 63.5036 kg

DRUGS (12)
  1. CARBOPLATIN [Suspect]
     Indication: OVARIAN CANCER
     Dosage: ANC 4 IV D1, Q3WKS
     Route: 042
     Dates: start: 20060428
  2. CARBOPLATIN [Suspect]
     Indication: OVARIAN CANCER
     Dosage: ANC 4 IV D1, Q3WKS
     Route: 042
     Dates: start: 20060504
  3. CARBOPLATIN [Suspect]
     Indication: OVARIAN CANCER
     Dosage: ANC 4 IV D1, Q3WKS
     Route: 042
     Dates: start: 20060605
  4. CARBOPLATIN [Suspect]
     Indication: OVARIAN CANCER
     Dosage: ANC 4 IV D1, Q3WKS
     Route: 042
     Dates: start: 20060612
  5. CARBOPLATIN [Suspect]
     Indication: OVARIAN CANCER
     Dosage: ANC 4 IV D1, Q3WKS
     Route: 042
     Dates: start: 20060703
  6. CARBOPLATIN [Suspect]
     Indication: OVARIAN CANCER
     Dosage: ANC 4 IV D1, Q3WKS
     Route: 042
     Dates: start: 20060710
  7. GEMCITABINE [Suspect]
     Indication: OVARIAN CANCER
     Dosage: 800 MG/M2 IV D1,8
     Route: 042
     Dates: start: 20060428
  8. GEMCITABINE [Suspect]
     Indication: OVARIAN CANCER
     Dosage: 800 MG/M2 IV D1,8
     Route: 042
     Dates: start: 20060504
  9. GEMCITABINE [Suspect]
     Indication: OVARIAN CANCER
     Dosage: 800 MG/M2 IV D1,8
     Route: 042
     Dates: start: 20060605
  10. GEMCITABINE [Suspect]
     Indication: OVARIAN CANCER
     Dosage: 800 MG/M2 IV D1,8
     Route: 042
     Dates: start: 20060612
  11. GEMCITABINE [Suspect]
     Indication: OVARIAN CANCER
     Dosage: 800 MG/M2 IV D1,8
     Route: 042
     Dates: start: 20060703
  12. GEMCITABINE [Suspect]
     Indication: OVARIAN CANCER
     Dosage: 800 MG/M2 IV D1,8
     Route: 042
     Dates: start: 20060710

REACTIONS (4)
  - CHILLS [None]
  - INFECTION [None]
  - PYREXIA [None]
  - RESPIRATORY RATE INCREASED [None]
